FAERS Safety Report 6992864-2 (Version None)
Quarter: 2010Q3

REPORT INFORMATION
  Report Type: 
  Country: None (occurrence: None)
  Receive Date: 20100917
  Receipt Date: 20100908
  Transmission Date: 20110219
  Serious: Yes (Other)
  Sender: FDA-Public Use
  Company Number: B0672916A

PATIENT
  Age: 56 Year
  Sex: Male

DRUGS (2)
  1. RANITIDINE [Suspect]
     Dosage: 150MG PER DAY
     Route: 065
  2. PINAVERIUM [Concomitant]
     Dosage: 50MG PER DAY

REACTIONS (13)
  - ABDOMINAL PAIN [None]
  - ANAPHYLACTIC REACTION [None]
  - ANGIOEDEMA [None]
  - DIZZINESS [None]
  - DYSPNOEA [None]
  - FACE OEDEMA [None]
  - HYPOTENSION [None]
  - PRURITUS [None]
  - RASH [None]
  - RHINORRHOEA [None]
  - SKIN TEST POSITIVE [None]
  - SNEEZING [None]
  - URTICARIA [None]
